FAERS Safety Report 8186109-8 (Version None)
Quarter: 2012Q1

REPORT INFORMATION
  Report Type: 
  Country: None (occurrence: None)
  Receive Date: 20120301
  Receipt Date: 20120221
  Transmission Date: 20120608
  Serious: Yes (Other)
  Sender: FDA-Public Use
  Company Number: AUR-APL-2012-01117

PATIENT
  Age: 20 Year
  Sex: Male

DRUGS (2)
  1. AMPICILLIN [Suspect]
     Indication: PRODUCT USED FOR UNKNOWN INDICATION
  2. SEPTRA [Suspect]
     Indication: PRODUCT USED FOR UNKNOWN INDICATION

REACTIONS (4)
  - BLOOD TESTOSTERONE DECREASED [None]
  - ALOPECIA [None]
  - HYPOGONADISM [None]
  - BLOOD LUTEINISING HORMONE DECREASED [None]
